FAERS Safety Report 5528925-4 (Version None)
Quarter: 2007Q4

REPORT INFORMATION
  Report Type: 
  Country: None (occurrence: None)
  Receive Date: 20071129
  Receipt Date: 20071115
  Transmission Date: 20080405
  Serious: Yes (Death, Hospitalization)
  Sender: FDA-Public Use
  Company Number: DE-ELI_LILLY_AND_COMPANY-DE200708002427

PATIENT
  Sex: Female

DRUGS (4)
  1. FORTEO [Suspect]
     Indication: OSTEOPOROSIS
     Dosage: UNK, UNKNOWN
     Route: 065
     Dates: start: 20070509, end: 20070727
  2. CORTISONE ACETATE TAB [Concomitant]
  3. IBUPROFEN [Concomitant]
  4. CALCIUM [Concomitant]

REACTIONS (3)
  - DEATH [None]
  - GASTROINTESTINAL INFECTION [None]
  - LUMBAR VERTEBRAL FRACTURE [None]
